FAERS Safety Report 9747541 (Version 1)
Quarter: 2013Q4

REPORT INFORMATION
  Report Type: Spontaneous
  Country: US (occurrence: None)
  Receive Date: 20131205
  Receipt Date: 20131205
  Transmission Date: 20140711
  Serious: Yes (Hospitalization)
  Sender: FDA-Public Use
  Company Number: 54973 AE # 1517

PATIENT
  Age: 6 Month
  Sex: Female

DRUGS (2)
  1. HYLAND^S BABY TEETHING TABLETS [Suspect]
     Indication: TEETHING
  2. HYLAND^S TEETHING TABLETS [Suspect]
     Indication: TEETHING

REACTIONS (10)
  - Decreased appetite [None]
  - Lethargy [None]
  - Asthenia [None]
  - Ear infection [None]
  - Unresponsive to stimuli [None]
  - Lethargy [None]
  - Choking [None]
  - Respiratory arrest [None]
  - Toxicity to various agents [None]
  - Botulism [None]
